FAERS Safety Report 8436960-1 (Version None)
Quarter: 2012Q2

REPORT INFORMATION
  Report Type: 
  Country: None (occurrence: None)
  Receive Date: 20120614
  Receipt Date: 20120602
  Transmission Date: 20120825
  Serious: Yes (Death)
  Sender: FDA-Public Use
  Company Number: US-PFIZER INC-2012076377

PATIENT
  Sex: Male
  Weight: 85.8 kg

DRUGS (9)
  1. CRIZOTINIB [Suspect]
     Indication: NON-SMALL CELL LUNG CANCER
     Dosage: 250 MG, 2X/DAY
     Route: 048
     Dates: start: 20110908, end: 20120301
  2. COLCHICINE [Concomitant]
     Indication: GOUT
     Dosage: UNK
     Dates: start: 20110827, end: 20120119
  3. OXYGEN-HELIUM IN [Concomitant]
     Dosage: UNK
  4. NOVOLOG GLEXPEN [Concomitant]
     Indication: TYPE 1 DIABETES MELLITUS
     Dosage: UNK
     Dates: start: 20110713
  5. DEXAMETHASONE [Concomitant]
     Indication: PNEUMONIA
     Dosage: UNK
     Dates: start: 20110831
  6. LANTUS [Concomitant]
     Indication: TYPE 1 DIABETES MELLITUS
     Dosage: UNK
     Dates: start: 20110713
  7. FOLIC ACID [Concomitant]
     Dosage: UNK
     Dates: start: 20120119
  8. PROCHLORPERAZINE [Concomitant]
     Indication: PROPHYLAXIS OF NAUSEA AND VOMITING
     Dosage: UNK
     Dates: start: 20110831, end: 20120119
  9. GLIMEPIRIDE [Concomitant]
     Indication: TYPE 1 DIABETES MELLITUS
     Dosage: UNK
     Route: 048
     Dates: start: 20110713

REACTIONS (1)
  - DEATH [None]
